FAERS Safety Report 9975960 (Version 4)
Quarter: 2014Q3

REPORT INFORMATION
  Report Type: Spontaneous
  Country: US (occurrence: US)
  Receive Date: 20140306
  Receipt Date: 20140729
  Transmission Date: 20150326
  Serious: No
  Sender: FDA-Public Use
  Company Number: US-PFIZER INC-2014063829

PATIENT
  Age: 40 Year
  Sex: Male
  Weight: 68.03 kg

DRUGS (4)
  1. LYRICA [Suspect]
     Active Substance: PREGABALIN
     Indication: NERVE INJURY
     Dosage: 300 MG, 2X/DAY
  2. CELEBREX [Concomitant]
     Active Substance: CELECOXIB
     Dosage: 200 MG, 2X/DAY
  3. LYRICA [Suspect]
     Active Substance: PREGABALIN
     Indication: BACK INJURY
     Dosage: 600 MG, 1X/DAY
  4. LODINE [Concomitant]
     Active Substance: ETODOLAC
     Indication: INFLAMMATION
     Dosage: 600 MG, 2X/DAY

REACTIONS (11)
  - Dizziness [Unknown]
  - Pyrexia [Unknown]
  - Hyperhidrosis [Unknown]
  - Insomnia [Unknown]
  - Tremor [Unknown]
  - Feeling hot [Unknown]
  - Drug withdrawal syndrome [Unknown]
  - Pre-existing condition improved [Unknown]
  - Pain [Unknown]
  - Rash pustular [Unknown]
  - Therapeutic response changed [Unknown]

NARRATIVE: CASE EVENT DATE: 201401
